FAERS Safety Report 5708689-1 (Version None)
Quarter: 2008Q2

REPORT INFORMATION
  Report Type: 
  Country: None (occurrence: None)
  Receive Date: 20080417
  Receipt Date: 20080321
  Transmission Date: 20081010
  Serious: No
  Sender: FDA-Public Use
  Company Number: US-BOEHRINGER INGELHEIM GMBH, GERMANY-2008-BP-04493BP

PATIENT
  Age: 63 Year
  Sex: Female

DRUGS (13)
  1. AGGRENOX [Suspect]
     Indication: CEREBROVASCULAR ACCIDENT PROPHYLAXIS
     Route: 048
     Dates: start: 20080307
  2. LYRICA [Concomitant]
  3. OPAMA [Concomitant]
  4. AMITRIPTYLINE HCL [Concomitant]
  5. SPIRONOLACTONE [Concomitant]
  6. LIPITOR [Concomitant]
  7. CARDIZEM [Concomitant]
  8. HYDROCHLOROTHIAZIDE [Concomitant]
  9. ALLEGRA [Concomitant]
  10. SINGULAIR [Concomitant]
  11. NORCO [Concomitant]
  12. DIALOSE [Concomitant]
  13. NASONEX [Concomitant]

REACTIONS (1)
  - MUSCLE SPASMS [None]
